FAERS Safety Report 19824538 (Version 2)
Quarter: 2021Q3

REPORT INFORMATION
  Report Type: Spontaneous
  Country: ES (occurrence: ES)
  Receive Date: 20210914
  Receipt Date: 20210922
  Transmission Date: 20211014
  Serious: Yes (Life-Threatening, Hospitalization, Other)
  Sender: FDA-Public Use
  Company Number: ES-AUROBINDO-AUR-APL-2021-038349

PATIENT
  Age: 79 Year
  Sex: Female

DRUGS (1)
  1. LETROZOLE. [Suspect]
     Active Substance: LETROZOLE
     Indication: BREAST CANCER STAGE I
     Dosage: UNK
     Route: 065

REACTIONS (2)
  - Aortic thrombosis [Recovered/Resolved]
  - Pulmonary embolism [Recovered/Resolved]
